FAERS Safety Report 9556983 (Version 1)
Quarter: 2013Q3

REPORT INFORMATION
  Report Type: Spontaneous
  Country: US (occurrence: None)
  Receive Date: 20130909
  Receipt Date: 20130909
  Transmission Date: 20140515
  Serious: Yes (Other)
  Sender: FDA-Public Use
  Company Number: 376704

PATIENT
  Age: 64 Year
  Sex: Male
  Weight: 94.3 kg

DRUGS (13)
  1. VICTOZA (LIRAGLUTIDE) SOLUTION FOR INJECTION, 6MG/ML [Suspect]
     Indication: TYPE 2 DIABETES MELLITUS
     Route: 058
     Dates: start: 20110630, end: 20130422
  2. LEVEMIR (INSULIN DETEMIR) SOLUTION FOR INJECTION, .0024 MOL/L [Concomitant]
  3. APIDRA (INSULIN GLULISINE) [Concomitant]
  4. METFORMIN (METFORMIN) [Concomitant]
  5. ATORVASTATIN (ATORVASTATIN) [Concomitant]
  6. VIAGRA (SILDENAFIL CITRATE) [Concomitant]
  7. PANTOPRAZOLE (PANTOPRAZOLE) [Concomitant]
  8. AMLODIPINE (AMLODIPINE) [Concomitant]
  9. CITALOPRAM (CITALOPRAM) [Concomitant]
  10. DILTIAZEM [Concomitant]
  11. METOPROLOL (M,ETOPROLOL) [Concomitant]
  12. PLAVIX (CLOPIDOGREL BISULFATE) [Concomitant]
  13. NITRO  (GLYCERYL TRINITRATE) [Concomitant]

REACTIONS (1)
  - Pancreatitis [None]
